FAERS Safety Report 17847313 (Version 1)
Quarter: 2020Q2

REPORT INFORMATION
  Report Type: Spontaneous
  Country: US (occurrence: US)
  Receive Date: 20200601
  Receipt Date: 20200601
  Transmission Date: 20200714
  Serious: No
  Sender: FDA-Public Use
  Company Number: US-SOMERSET-2020-US-000168

PATIENT
  Sex: Female

DRUGS (1)
  1. BIMATOPROST OPHTHALMIC SOLUTION, 0.03% [Suspect]
     Active Substance: BIMATOPROST
     Dosage: PATIENT IS PRESCRIBED TO DISTILL 1 DROP IN EACH EYE ONCE DAILY
     Dates: start: 20200405, end: 20200525

REACTIONS (1)
  - Drug ineffective [Recovered/Resolved]

NARRATIVE: CASE EVENT DATE: 20200405
